FAERS Safety Report 4525912-X (Version None)
Quarter: 2004Q4

REPORT INFORMATION
  Report Type: 
  Country: None (occurrence: None)
  Receive Date: 20041124
  Receipt Date: 20040419
  Transmission Date: 20050328
  Serious: Yes (Other)
  Sender: FDA-Public Use
  Company Number: 2004014490

PATIENT
  Sex: Female

DRUGS (4)
  1. TIKOSYN [Suspect]
     Indication: ILL-DEFINED DISORDER
  2. WARFARIN SODIUM [Suspect]
     Indication: ILL-DEFINED DISORDER
  3. METOPROLOL SUCCINATE [Suspect]
     Indication: ILL-DEFINED DISORDER
  4. VALSARTAN (VALSARTAN) [Suspect]
     Indication: ILL-DEFINED DISORDER
     Dosage: 80 MG BID

REACTIONS (2)
  - CARDIAC PACEMAKER INSERTION [None]
  - WEIGHT LOSS POOR [None]
